FAERS Safety Report 12389744 (Version 2)
Quarter: 2016Q2

REPORT INFORMATION
  Report Type: Spontaneous
  Country: US (occurrence: US)
  Receive Date: 20160520
  Receipt Date: 20160527
  Transmission Date: 20160815
  Serious: No
  Sender: FDA-Public Use
  Company Number: US-009507513-1605USA003634

PATIENT

DRUGS (2)
  1. BCG VACCINE USP [Suspect]
     Active Substance: BCG VACCINE
     Indication: PROPHYLAXIS
     Dosage: UNK
     Route: 043
     Dates: start: 20160504
  2. TICE BCG [Suspect]
     Active Substance: BACILLUS CALMETTE-GUERIN SUBSTRAIN TICE LIVE ANTIGEN
     Indication: BLADDER CANCER
     Dosage: UNK

REACTIONS (3)
  - Wrong drug administered [Unknown]
  - Incorrect route of drug administration [Unknown]
  - No adverse event [Unknown]

NARRATIVE: CASE EVENT DATE: 20160504
